FAERS Safety Report 7701508-3 (Version None)
Quarter: 2011Q3

REPORT INFORMATION
  Report Type: 
  Country: None (occurrence: None)
  Receive Date: 20110822
  Receipt Date: 20110812
  Transmission Date: 20111222
  Serious: Yes (Other)
  Sender: FDA-Public Use
  Company Number: FR-MERCK-1108FRA00073

PATIENT
  Age: 39 Year
  Sex: Female

DRUGS (13)
  1. CYTARABINE [Suspect]
     Route: 065
     Dates: start: 20080407
  2. CYTARABINE [Suspect]
     Route: 065
     Dates: start: 20080515
  3. DAUNORUBICIN HCL [Suspect]
     Indication: ACUTE MYELOID LEUKAEMIA
     Route: 065
     Dates: start: 20080322
  4. CYCLOSPORINE [Suspect]
     Indication: ACUTE MYELOID LEUKAEMIA
     Route: 065
  5. BUSULFAN [Suspect]
     Indication: ACUTE MYELOID LEUKAEMIA
     Route: 042
     Dates: start: 20080705, end: 20080708
  6. DAUNORUBICIN HCL [Suspect]
     Route: 065
     Dates: start: 20080407
  7. METHOTREXATE [Suspect]
     Indication: ACUTE MYELOID LEUKAEMIA
     Route: 065
  8. CYTARABINE [Suspect]
     Indication: ACUTE MYELOID LEUKAEMIA
     Route: 065
     Dates: start: 20080322
  9. CANCIDAS [Suspect]
     Indication: ACUTE MYELOID LEUKAEMIA
     Route: 042
  10. CYTARABINE [Suspect]
     Route: 065
     Dates: start: 20080601
  11. AMSACRINE [Suspect]
     Indication: ACUTE MYELOID LEUKAEMIA
     Route: 065
     Dates: start: 20080515
  12. CYCLOPHOSPHAMIDE [Suspect]
     Indication: ACUTE MYELOID LEUKAEMIA
     Route: 042
     Dates: start: 20080710, end: 20080711
  13. DAUNORUBICIN HCL [Suspect]
     Route: 065
     Dates: start: 20080601

REACTIONS (1)
  - CYTOLYTIC HEPATITIS [None]
